FAERS Safety Report 9284640 (Version 1)
Quarter: 2013Q2

REPORT INFORMATION
  Report Type: Spontaneous
  Country: US (occurrence: US)
  Receive Date: 20130513
  Receipt Date: 20130513
  Transmission Date: 20140414
  Serious: Yes (Hospitalization, Other)
  Sender: FDA-Public Use
  Company Number: US-AMGEN-USASP2013032771

PATIENT
  Age: 77 Year
  Sex: Male

DRUGS (1)
  1. ENBREL [Suspect]
     Indication: RHEUMATOID ARTHRITIS
     Dosage: 50 MG, QWK
     Dates: start: 1998, end: 20130506

REACTIONS (4)
  - Renal cancer [Recovered/Resolved]
  - Cardiac murmur [Recovered/Resolved]
  - Renal cyst [Not Recovered/Not Resolved]
  - Fatigue [Recovered/Resolved]
